FAERS Safety Report 9334814 (Version 1)
Quarter: 2013Q2

REPORT INFORMATION
  Report Type: Spontaneous
  Country: US (occurrence: US)
  Receive Date: 20130606
  Receipt Date: 20130606
  Transmission Date: 20140414
  Serious: Yes (Other)
  Sender: FDA-Public Use
  Company Number: US-AMGEN-USASP2013029132

PATIENT
  Age: 60 Year
  Sex: Female

DRUGS (2)
  1. XGEVA [Suspect]
     Indication: BREAST CANCER
  2. TAMOXIFEN [Concomitant]

REACTIONS (2)
  - Hypocalcaemia [Not Recovered/Not Resolved]
  - Diarrhoea [Not Recovered/Not Resolved]
